FAERS Safety Report 6203992-3 (Version None)
Quarter: 2009Q2

REPORT INFORMATION
  Report Type: 
  Country: None (occurrence: None)
  Receive Date: 20090518
  Receipt Date: 20090304
  Transmission Date: 20091009
  Serious: No
  Sender: FDA-Public Use
  Company Number: WAES 0903USA00743

PATIENT
  Age: 77 Year
  Sex: Female
  Weight: 78.4723 kg

DRUGS (7)
  1. JANUVIA [Suspect]
     Indication: DIABETES MELLITUS
     Dosage: 100 MG/PO
     Route: 048
     Dates: start: 20080501
  2. ACTOS [Concomitant]
  3. CARTROL [Concomitant]
  4. FOSAMAX [Concomitant]
  5. LANTUS [Concomitant]
  6. LASIX [Concomitant]
  7. DOXEPIN HYDROCHLORIDE [Concomitant]

REACTIONS (2)
  - COUGH [None]
  - PHARYNGEAL OEDEMA [None]
